FAERS Safety Report 7237097-X (Version None)
Quarter: 2011Q1

REPORT INFORMATION
  Report Type: 
  Country: None (occurrence: None)
  Receive Date: 20110121
  Receipt Date: 20110112
  Transmission Date: 20110831
  Serious: Yes (Other)
  Sender: FDA-Public Use
  Company Number: US-RB-019070-11

PATIENT
  Age: 19 Year
  Sex: Male

DRUGS (1)
  1. MUCINEX DM [Suspect]
     Indication: RESPIRATORY TRACT CONGESTION
     Route: 048

REACTIONS (4)
  - FEELING ABNORMAL [None]
  - INCOHERENT [None]
  - DISORIENTATION [None]
  - HALLUCINATION [None]
